FAERS Safety Report 8435471-7 (Version None)
Quarter: 2012Q2

REPORT INFORMATION
  Report Type: 
  Country: None (occurrence: None)
  Receive Date: 20120614
  Receipt Date: 20120601
  Transmission Date: 20120825
  Serious: Yes (Hospitalization, Other)
  Sender: FDA-Public Use
  Company Number: JP-UCBSA-054552

PATIENT
  Age: 82 Year
  Sex: Male

DRUGS (8)
  1. CLARITHROMYCIN [Concomitant]
     Indication: MYCOBACTERIUM AVIUM COMPLEX INFECTION
     Route: 048
     Dates: start: 20110905, end: 20120326
  2. XYZAL [Suspect]
     Indication: RHINITIS ALLERGIC
     Route: 048
     Dates: start: 20120228, end: 20120326
  3. RIFAMPICIN [Concomitant]
     Indication: MYCOBACTERIUM AVIUM COMPLEX INFECTION
     Route: 048
     Dates: start: 20110905, end: 20120326
  4. CEFAZOLIN SODIUM [Concomitant]
     Route: 048
     Dates: start: 20110920, end: 20120326
  5. NASONEX [Concomitant]
     Indication: RHINITIS ALLERGIC
     Route: 045
     Dates: start: 20120228, end: 20120326
  6. ETHAMBUTOL HYDROCHLORIDE [Concomitant]
     Indication: MYCOBACTERIUM AVIUM COMPLEX INFECTION
     Route: 048
     Dates: start: 20110905, end: 20120326
  7. CODEINE PHOSPHATE HYDRATE [Concomitant]
     Dosage: DOSAGE FORM:POW
     Route: 048
     Dates: start: 20111220, end: 20120326
  8. AMIKACIN SULFATE [Concomitant]
     Indication: MYCOBACTERIUM AVIUM COMPLEX INFECTION
     Route: 041
     Dates: start: 20110921, end: 20120323

REACTIONS (2)
  - ASPIRATION BONE MARROW ABNORMAL [None]
  - PANCYTOPENIA [None]
